FAERS Safety Report 12237004 (Version 1)
Quarter: 2016Q2

REPORT INFORMATION
  Report Type: Spontaneous
  Country: ES (occurrence: ES)
  Receive Date: 20160405
  Receipt Date: 20160405
  Transmission Date: 20160815
  Serious: Yes (Life-Threatening, Hospitalization, Other)
  Sender: FDA-Public Use
  Company Number: ES-ACCORD-039376

PATIENT
  Age: 85 Year
  Sex: Female

DRUGS (10)
  1. METOCLOPRAMIDE. [Suspect]
     Active Substance: METOCLOPRAMIDE
     Indication: NAUSEA
  2. AMIODARONE [Suspect]
     Active Substance: AMIODARONE
     Indication: PRODUCT USED FOR UNKNOWN INDICATION
  3. METFORMIN [Concomitant]
     Active Substance: METFORMIN HYDROCHLORIDE
  4. BISOPROLOL [Concomitant]
     Active Substance: BISOPROLOL
  5. IRON [Concomitant]
     Active Substance: IRON
  6. ESCITALOPRAM [Suspect]
     Active Substance: ESCITALOPRAM OXALATE
     Indication: PRODUCT USED FOR UNKNOWN INDICATION
  7. BETAHISTINE [Concomitant]
     Active Substance: BETAHISTINE
  8. SIMVASTATIN. [Concomitant]
     Active Substance: SIMVASTATIN
  9. ACENOCOUMAROL [Concomitant]
     Active Substance: ACENOCOUMAROL
  10. LOSARTAN. [Concomitant]
     Active Substance: LOSARTAN

REACTIONS (6)
  - Hypomagnesaemia [Recovered/Resolved]
  - Bundle branch block left [Recovered/Resolved]
  - Electrocardiogram QT prolonged [Recovered/Resolved]
  - Torsade de pointes [Recovered/Resolved]
  - Cardio-respiratory arrest [Recovered/Resolved]
  - Hypokalaemia [Recovered/Resolved]
